FAERS Safety Report 8501583-2 (Version None)
Quarter: 2012Q3

REPORT INFORMATION
  Report Type: 
  Country: None (occurrence: None)
  Receive Date: 20120710
  Receipt Date: 20120625
  Transmission Date: 20120928
  Serious: Yes (Other)
  Sender: FDA-Public Use
  Company Number: CN-WATSON-2012-11767

PATIENT
  Age: 64 Year
  Sex: Male

DRUGS (4)
  1. ORAL ANTIDIABETICS [Suspect]
     Indication: PRODUCT USED FOR UNKNOWN INDICATION
     Dosage: UNK
     Route: 065
  2. PHENFORMIN                         /00043402/ [Suspect]
     Indication: PRODUCT USED FOR UNKNOWN INDICATION
     Dosage: UNK
     Route: 065
  3. METFORMIN HCL [Suspect]
     Indication: PRODUCT USED FOR UNKNOWN INDICATION
     Dosage: UNK
     Route: 065
  4. GLYBURIDE [Suspect]
     Indication: PRODUCT USED FOR UNKNOWN INDICATION
     Dosage: UNK
     Route: 065

REACTIONS (4)
  - HYPOGLYCAEMIA [None]
  - ACCIDENTAL EXPOSURE [None]
  - TOXICITY TO VARIOUS AGENTS [None]
  - LACTIC ACIDOSIS [None]
